FAERS Safety Report 4966375-X (Version None)
Quarter: 2006Q2

REPORT INFORMATION
  Report Type: 
  Country: None (occurrence: None)
  Receive Date: 20060403
  Receipt Date: 20060320
  Transmission Date: 20061013
  Serious: Yes (Death)
  Sender: FDA-Public Use
  Company Number: 2006039377

PATIENT
  Age: 50 Year
  Sex: Male

DRUGS (1)
  1. SOLU-MEDROL [Suspect]
     Indication: SHOCK HAEMORRHAGIC
     Dosage: 2000 MG (2 IN 1 D), INTRAVENOUS
     Route: 042
     Dates: start: 20060315, end: 20060315

REACTIONS (1)
  - SHOCK HAEMORRHAGIC [None]
